FAERS Safety Report 9321074 (Version 2)
Quarter: 2013Q3

REPORT INFORMATION
  Report Type: Spontaneous
  Country: JP (occurrence: None)
  Receive Date: 20130528
  Receipt Date: 20130701
  Transmission Date: 20140515
  Serious: Yes (Hospitalization)
  Sender: FDA-Public Use
  Company Number: TCI2013A02830

PATIENT
  Age: 75 Year
  Sex: Male

DRUGS (6)
  1. NESINA [Suspect]
     Indication: DIABETES MELLITUS
     Dosage: 25 MG ( 25 MG. 1 IN 1 D)
     Route: 048
     Dates: start: 201112, end: 20130329
  2. AMARYL (GLIMEPIRIDE) [Concomitant]
  3. HARNAL D (TAMSULOSIN HYDROCHLORIDE) [Concomitant]
  4. METHYCOBAL (MECOBALAMIN) [Concomitant]
  5. URSO (URSODEOXYCHOLIC ACID) [Concomitant]
  6. PRAVAMATE (PRAVASTATIN SODIUM) [Concomitant]

REACTIONS (7)
  - Intestinal obstruction [None]
  - Abdominal pain [None]
  - Constipation [None]
  - Vomiting [None]
  - Blood glucose increased [None]
  - Large intestine polyp [None]
  - Ileus [None]
